FAERS Safety Report 23084596 (Version 2)
Quarter: 2024Q4

REPORT INFORMATION
  Report Type: Spontaneous
  Country: DK (occurrence: DK)
  Receive Date: 20231019
  Receipt Date: 20241230
  Transmission Date: 20250114
  Serious: Yes (Congenital Anomaly)
  Sender: MYLAN
  Company Number: None

PATIENT

DRUGS (2)
  1. SERTRALINE [Suspect]
     Active Substance: SERTRALINE HYDROCHLORIDE
     Indication: Depression
     Dosage: 50 MILLIGRAM, QD
     Route: 064
     Dates: start: 20230622
  2. FLUOXETINE HYDROCHLORIDE [Suspect]
     Active Substance: FLUOXETINE HYDROCHLORIDE
     Indication: Depression
     Dosage: 20 MILLIGRAM, BID  (40 MILLIGRAM, QD)
     Route: 064
     Dates: start: 20221010, end: 20230622

REACTIONS (2)
  - Neural tube defect [Not Recovered/Not Resolved]
  - Foetal exposure during pregnancy [Not Recovered/Not Resolved]

NARRATIVE: CASE EVENT DATE: 20230101
